FAERS Safety Report 8998419 (Version 1)
Quarter: 2013Q1

REPORT INFORMATION
  Report Type: Spontaneous
  Country: US (occurrence: US)
  Receive Date: 20130103
  Receipt Date: 20130103
  Transmission Date: 20140127
  Serious: No
  Sender: FDA-Public Use
  Company Number: US-BAYER-2013-000380

PATIENT
  Age: 12 Year
  Sex: Female
  Weight: 54 kg

DRUGS (2)
  1. ALEVE CAPLET/TABLET,MIDOL EXTENDED RELIEF CAPLET [Suspect]
     Indication: HEADACHE
     Dosage: 2 DF, UNK
     Route: 048
  2. ALBUTEROL INHALER [Concomitant]

REACTIONS (4)
  - Lip swelling [Not Recovered/Not Resolved]
  - Lip discolouration [Recovered/Resolved]
  - Lip pain [Not Recovered/Not Resolved]
  - Nausea [Recovered/Resolved]
